FAERS Safety Report 9565828 (Version 3)
Quarter: 2013Q4

REPORT INFORMATION
  Report Type: Report from Study
  Country: JP (occurrence: JP)
  Receive Date: 20130930
  Receipt Date: 20131107
  Transmission Date: 20140711
  Serious: Yes (Hospitalization)
  Sender: FDA-Public Use
  Company Number: JP-ABBVIE-13P-087-1123319-00

PATIENT
  Age: 52 Year
  Sex: Female
  Weight: 65 kg

DRUGS (13)
  1. HUMIRA [Suspect]
     Indication: CROHN^S DISEASE
     Route: 058
     Dates: start: 20120712, end: 20120712
  2. HUMIRA [Suspect]
     Dates: start: 20120726, end: 20120726
  3. HUMIRA [Suspect]
     Dates: start: 20120809, end: 20130404
  4. IMURAN [Suspect]
     Indication: CROHN^S DISEASE
     Route: 048
     Dates: start: 20130111, end: 20130419
  5. PENTASA [Suspect]
     Indication: CROHN^S DISEASE
     Route: 048
     Dates: end: 20130418
  6. PREDONINE [Suspect]
     Indication: CROHN^S DISEASE
     Route: 048
     Dates: start: 20121130, end: 20130412
  7. PREDONINE [Suspect]
     Route: 050
     Dates: start: 20130413, end: 20130416
  8. PREDONINE [Suspect]
     Dates: start: 20130417, end: 20130508
  9. PREDONINE [Suspect]
     Dates: start: 20130509
  10. PREDONINE [Suspect]
     Route: 048
  11. FAMOTIDINE [Concomitant]
     Indication: GASTRITIS PROPHYLAXIS
     Route: 048
     Dates: start: 20121016, end: 20130412
  12. DIGESTIVE ENZYME PREPARATIONS [Concomitant]
     Indication: DYSPEPSIA
     Route: 048
  13. ESOMEPRAZOLE MAGNESIUM [Concomitant]
     Indication: GASTRITIS PROPHYLAXIS
     Route: 048
     Dates: start: 20130413

REACTIONS (8)
  - Anaemia [Recovering/Resolving]
  - Abdominal abscess [Unknown]
  - Respiratory tract infection fungal [Recovering/Resolving]
  - Crohn^s disease [Recovering/Resolving]
  - Malnutrition [Recovering/Resolving]
  - General physical health deterioration [Recovering/Resolving]
  - Hyperthermia [Unknown]
  - Drug ineffective [Unknown]
